FAERS Safety Report 20707713 (Version 1)
Quarter: 2022Q2

REPORT INFORMATION
  Report Type: Report from Study
  Country: FR (occurrence: FR)
  Receive Date: 20220413
  Receipt Date: 20220413
  Transmission Date: 20220721
  Serious: Yes (Hospitalization)
  Sender: FDA-Public Use
  Company Number: FR-ABBVIE-22K-056-4357604-00

PATIENT
  Age: 76 Year
  Sex: Male

DRUGS (3)
  1. CARBIDOPA\LEVODOPA [Suspect]
     Active Substance: CARBIDOPA\LEVODOPA
     Indication: Parkinson^s disease
     Route: 050
     Dates: start: 2019
  2. CARBIDOPA\LEVODOPA [Suspect]
     Active Substance: CARBIDOPA\LEVODOPA
  3. BOTOX [Suspect]
     Active Substance: ONABOTULINUMTOXINA
     Indication: Pollakiuria
     Route: 058

REACTIONS (7)
  - Pollakiuria [Unknown]
  - Bladder disorder [Unknown]
  - Balance disorder [Unknown]
  - Haematoma [Unknown]
  - Fall [Unknown]
  - Fatigue [Unknown]
  - Vomiting [Unknown]
